FAERS Safety Report 5656563-1 (Version None)
Quarter: 2008Q1

REPORT INFORMATION
  Report Type: 
  Country: None (occurrence: None)
  Receive Date: 20080310
  Receipt Date: 20080227
  Transmission Date: 20080703
  Serious: Yes (Death)
  Sender: FDA-Public Use
  Company Number: TR-WYE-H02851308

PATIENT
  Age: 17 Year
  Sex: Female

DRUGS (3)
  1. EFFEXOR XR [Suspect]
     Indication: DEPRESSION
     Route: 048
     Dates: start: 20070101
  2. LAMICTAL [Concomitant]
  3. RISPERDAL [Concomitant]

REACTIONS (1)
  - DEATH [None]
